FAERS Safety Report 14973486 (Version 1)
Quarter: 2018Q2

REPORT INFORMATION
  Report Type: Spontaneous
  Country: DE (occurrence: DE)
  Receive Date: 20180605
  Receipt Date: 20180605
  Transmission Date: 20180711
  Serious: Yes (Other)
  Sender: FDA-Public Use
  Company Number: DE-ACCORD-067645

PATIENT
  Age: 52 Year
  Sex: Male

DRUGS (3)
  1. LAMOTRIGIN QUADRO [Suspect]
     Active Substance: LAMOTRIGINE
     Indication: GENERALISED TONIC-CLONIC SEIZURE
     Dosage: 25-0-0; 100
  2. TOPIRAMATE. [Suspect]
     Active Substance: TOPIRAMATE
     Indication: GENERALISED TONIC-CLONIC SEIZURE
  3. ORFIRIL LONG [Suspect]
     Active Substance: VALPROIC ACID
     Indication: GENERALISED TONIC-CLONIC SEIZURE
     Dosage: 450-0-300

REACTIONS (18)
  - Fall [Not Recovered/Not Resolved]
  - Head discomfort [Unknown]
  - Vision blurred [Not Recovered/Not Resolved]
  - Skin odour abnormal [Not Recovered/Not Resolved]
  - Balance disorder [Recovered/Resolved]
  - Dyspepsia [Not Recovered/Not Resolved]
  - Dizziness [Recovered/Resolved]
  - Dysgeusia [None]
  - Decreased appetite [Not Recovered/Not Resolved]
  - Weight increased [Recovered/Resolved]
  - Confusional state [Not Recovered/Not Resolved]
  - Vomiting [Not Recovered/Not Resolved]
  - Chromaturia [Not Recovered/Not Resolved]
  - Feeling cold [Not Recovered/Not Resolved]
  - Drug intolerance [Unknown]
  - Headache [Not Recovered/Not Resolved]
  - Hyperhidrosis [Not Recovered/Not Resolved]
  - Balance disorder [None]

NARRATIVE: CASE EVENT DATE: 2015
